FAERS Safety Report 5035598-6 (Version None)
Quarter: 2006Q2

REPORT INFORMATION
  Report Type: 
  Country: None (occurrence: None)
  Receive Date: 20060526
  Receipt Date: 20060411
  Transmission Date: 20061013
  Serious: No
  Sender: FDA-Public Use
  Company Number: 217693

PATIENT
  Age: 52 Year
  Sex: Female
  Weight: 79.4 kg

DRUGS (8)
  1. RAPTIVA [Suspect]
     Indication: PSORIASIS
     Dosage: 125 MG, 1/WEEK, SUBCUTANEOUS
     Route: 058
     Dates: start: 20050601, end: 20051101
  2. RAPTIVA [Suspect]
     Indication: PSORIASIS
     Dosage: 125 MG, 1/WEEK, SUBCUTANEOUS
     Route: 058
     Dates: start: 20060201
  3. CELEBREX [Concomitant]
  4. AMBIEN (ZOLPIDEN TARTRATE) [Concomitant]
  5. METHOTREXATE [Concomitant]
  6. ESTRACE [Concomitant]
  7. TRIAMCINOLON CREME (TRIAMCINOLONE ACETONIDE) [Concomitant]
  8. CLOBETASOL (CLOBETASOL PROPIONATE) [Concomitant]

REACTIONS (3)
  - MUSCULOSKELETAL STIFFNESS [None]
  - MYALGIA [None]
  - PSORIASIS [None]
